FAERS Safety Report 5608534-9 (Version None)
Quarter: 2008Q1

REPORT INFORMATION
  Report Type: 
  Country: None (occurrence: None)
  Receive Date: 20080125
  Receipt Date: 20080114
  Transmission Date: 20080703
  Serious: Yes (Disabling, Other)
  Sender: FDA-Public Use
  Company Number: GXKR2008NL00871

PATIENT
  Age: 38 Year
  Sex: Female

DRUGS (10)
  1. METOPROLOL                              (NGX)            (METOPROLOL) [Suspect]
     Dosage: 1 DF, QD, ORAL
     Route: 048
     Dates: start: 20070819
  2. HYDROCHLOROTHIAZIDE [Concomitant]
  3. LISINOPRIL [Concomitant]
  4. CETOMACROGOL                   (S) (CETOMACROGOL 1000) OINTMENT [Concomitant]
  5. FLUOROMETHOLONE                   (FLUROMETHOLONE) EYE DROPS [Concomitant]
  6. INSUMAN COMB   (INSULIN HUMAN, INSULIN HUMAN INJECTION, ISOPHANE) [Concomitant]
  7. LOSARTAN                  (LOSARTAN) FILM-COATED TABLET [Concomitant]
  8. NOVORAPID                   (INSULIN ASPART) [Concomitant]
  9. LANTUS [Concomitant]
  10. CELLUVISC             (CARMELLOSE SODIUM) EYE DROPS [Concomitant]

REACTIONS (3)
  - BLINDNESS [None]
  - DRY EYE [None]
  - KERATITIS [None]
